FAERS Safety Report 17299332 (Version 1)
Quarter: 2020Q1

REPORT INFORMATION
  Report Type: Spontaneous
  Country: US (occurrence: US)
  Receive Date: 20200121
  Receipt Date: 20200121
  Transmission Date: 20200409
  Serious: No
  Sender: FDA-Public Use
  Company Number: US-TEIKOKU PHARMA USA-TPU2019-00861

PATIENT
  Age: 50 Year
  Sex: Female

DRUGS (4)
  1. IBUPROFEN. [Concomitant]
     Active Substance: IBUPROFEN
     Indication: PAIN
     Dosage: TAKEN FOR 2-3 WEEKS
     Dates: start: 201912, end: 201912
  2. LIDOCAINE PATCH [Suspect]
     Active Substance: LIDOCAINE
     Indication: HERPES ZOSTER
     Dosage: ALTERNATING CENTER OF BACK AND UNDER LEFT BREAST 1 PATCH 1 TIME A DAY, FOR ABOUT A WEEK
     Route: 061
     Dates: start: 20191210
  3. SYNTHROID [Concomitant]
     Active Substance: LEVOTHYROXINE SODIUM
     Indication: HYPOTHYROIDISM
     Dates: start: 2017
  4. VALACYCLOVIR [Concomitant]
     Active Substance: VALACYCLOVIR HYDROCHLORIDE
     Indication: HERPES ZOSTER
     Dosage: TAKEN FOR 10 DAYS
     Dates: start: 201912, end: 201912

REACTIONS (3)
  - Burning sensation [Recovered/Resolved]
  - Rash [Recovered/Resolved]
  - Pain [Unknown]

NARRATIVE: CASE EVENT DATE: 20191211
